FAERS Safety Report 7111254-5 (Version None)
Quarter: 2010Q4

REPORT INFORMATION
  Report Type: 
  Country: None (occurrence: None)
  Receive Date: 20101118
  Receipt Date: 20091206
  Transmission Date: 20110411
  Serious: No
  Sender: FDA-Public Use
  Company Number: US-PFIZER INC-2009289759

PATIENT

DRUGS (6)
  1. ZYVOX [Suspect]
     Indication: STAPHYLOCOCCAL INFECTION
     Route: 048
  2. VIAGRA [Concomitant]
     Indication: ERECTILE DYSFUNCTION
  3. LEVOTHYROXINE [Concomitant]
     Dosage: 150 MG, UNK
  4. BOSENTAN [Concomitant]
  5. HYDROXYCHLOROQUINE [Concomitant]
  6. WARFARIN [Concomitant]

REACTIONS (1)
  - DRUG INEFFECTIVE [None]
